FAERS Safety Report 10109977 (Version 2)
Quarter: 2014Q2

REPORT INFORMATION
  Report Type: Spontaneous
  Country: US (occurrence: US)
  Receive Date: 20140425
  Receipt Date: 20140507
  Transmission Date: 20141212
  Serious: No
  Sender: FDA-Public Use
  Company Number: US-LUNDBECK-DKLU1099101

PATIENT
  Sex: Female

DRUGS (2)
  1. ONFI [Suspect]
     Indication: PRODUCT USED FOR UNKNOWN INDICATION
  2. ONFI [Suspect]

REACTIONS (2)
  - Salivary hypersecretion [Recovering/Resolving]
  - Sedation [Recovering/Resolving]
